FAERS Safety Report 20529303 (Version 2)
Quarter: 2022Q2

REPORT INFORMATION
  Report Type: Spontaneous
  Country: US (occurrence: US)
  Receive Date: 20220228
  Receipt Date: 20220419
  Transmission Date: 20220721
  Serious: Yes (Other)
  Sender: FDA-Public Use
  Company Number: US-LUNDBECK-DKLU3045015

PATIENT
  Age: 34 Year
  Sex: Female

DRUGS (1)
  1. VYEPTI [Suspect]
     Active Substance: EPTINEZUMAB-JJMR
     Indication: Migraine
     Route: 041
     Dates: start: 20220217

REACTIONS (4)
  - COVID-19 [Recovering/Resolving]
  - Headache [Unknown]
  - Feeling abnormal [Unknown]
  - Migraine [Unknown]

NARRATIVE: CASE EVENT DATE: 20220220
